FAERS Safety Report 8378934-5 (Version None)
Quarter: 2012Q2

REPORT INFORMATION
  Report Type: 
  Country: None (occurrence: None)
  Receive Date: 20120523
  Receipt Date: 20120517
  Transmission Date: 20120825
  Serious: No
  Sender: FDA-Public Use
  Company Number: US-PFIZER INC-2012122340

PATIENT
  Sex: Female
  Weight: 117.91 kg

DRUGS (2)
  1. BUSPAR [Concomitant]
     Dosage: UNK
  2. EFFEXOR XR [Suspect]
     Indication: DEPRESSION
     Dosage: 150 MG, 1X/DAY
     Route: 048
     Dates: start: 20020101, end: 20120513

REACTIONS (2)
  - ANXIETY [None]
  - RESTLESS LEGS SYNDROME [None]
